FAERS Safety Report 14986927 (Version 1)
Quarter: 2018Q2

REPORT INFORMATION
  Report Type: Report from Study
  Country: KZ (occurrence: KZ)
  Receive Date: 20180608
  Receipt Date: 20180608
  Transmission Date: 20180711
  Serious: Yes (Other)
  Sender: FDA-Public Use
  Company Number: KZ-ROCHE-2131525

PATIENT

DRUGS (1)
  1. TOCILIZUMAB. [Suspect]
     Active Substance: TOCILIZUMAB
     Indication: JUVENILE IDIOPATHIC ARTHRITIS
     Route: 042

REACTIONS (8)
  - Varicella [Unknown]
  - Infusion related reaction [Unknown]
  - Infection [Unknown]
  - Leukopenia [Unknown]
  - Hepatitis toxic [Unknown]
  - Neutropenia [Unknown]
  - Brain neoplasm malignant [Unknown]
  - Hypersensitivity [Unknown]
